FAERS Safety Report 7628914-X (Version None)
Quarter: 2011Q3

REPORT INFORMATION
  Report Type: 
  Country: None (occurrence: None)
  Receive Date: 20110722
  Receipt Date: 20110716
  Transmission Date: 20111222
  Serious: Yes (Hospitalization)
  Sender: FDA-Public Use
  Company Number: US-PFIZER INC-2011121929

PATIENT
  Sex: Male
  Weight: 70.3 kg

DRUGS (12)
  1. WELCHOL [Concomitant]
     Indication: DIARRHOEA
     Dosage: UNK
     Dates: start: 20110531
  2. TRAZODONE [Concomitant]
     Indication: DEPRESSION
     Dosage: 100 MG, 1X/DAY QHS
     Dates: start: 20110413
  3. NORVASC [Suspect]
     Indication: HYPERTENSION
     Dosage: 5 MG, 1X/DAY
     Dates: start: 20110530, end: 20110602
  4. CELLCEPT [Suspect]
     Indication: IMMUNOSUPPRESSION
     Dosage: 750/500/750 PER DAY
     Dates: start: 20110527, end: 20110605
  5. TACROLIMUS [Suspect]
     Indication: PROPHYLAXIS AGAINST TRANSPLANT REJECTION
     Dosage: 4 MG, 2X/DAY
     Route: 048
     Dates: start: 20110413, end: 20110601
  6. NEXIUM [Concomitant]
     Indication: PROPHYLAXIS AGAINST GASTROINTESTINAL ULCER
     Dosage: 40 MG, 1X/DAY
     Dates: start: 20110413
  7. PREDNISONE [Concomitant]
     Indication: IMMUNOSUPPRESSANT DRUG THERAPY
     Dosage: 5 MG, 1X/DAY
     Dates: start: 20110413
  8. BACTRIM [Concomitant]
     Indication: ANTIFUNGAL PROPHYLAXIS
     Dosage: 400 MG, 1X/DAY
     Dates: start: 20110415
  9. FISH OIL [Concomitant]
     Indication: VITAMIN SUPPLEMENTATION
     Dosage: 1200 MG, 2X/DAY
     Dates: start: 20110413
  10. VALCYTE [Concomitant]
     Indication: ANTIVIRAL PROPHYLAXIS
     Dosage: 450 MG, 1X/DAY
     Dates: start: 20110413
  11. MULTI-VITAMINS [Concomitant]
     Indication: SUPPLEMENTATION THERAPY
     Dosage: 1 TAB DAILY
     Dates: start: 20110413
  12. POTASSIUM PHOSPHATE [Concomitant]
     Indication: HYPOKALAEMIA
     Dosage: 250 MG, 2X/DAY
     Dates: start: 20110527

REACTIONS (2)
  - ELECTROLYTE IMBALANCE [None]
  - DIARRHOEA [None]
